FAERS Safety Report 4470891-7 (Version None)
Quarter: 2004Q4

REPORT INFORMATION
  Report Type: 
  Country: None (occurrence: None)
  Receive Date: 20041011
  Receipt Date: 20040928
  Transmission Date: 20050328
  Serious: Yes (Hospitalization)
  Sender: FDA-Public Use
  Company Number: US-AMGEN-US093534

PATIENT
  Sex: Female
  Weight: 83.5 kg

DRUGS (8)
  1. NEULASTA [Suspect]
     Indication: CHEMOTHERAPY
     Dates: start: 20040722
  2. GEMCITABINE HYDROCHLORIDE [Suspect]
     Indication: NON-HODGKIN'S LYMPHOMA
     Route: 042
     Dates: start: 20040722
  3. OXALIPLATIN [Suspect]
     Indication: NON-HODGKIN'S LYMPHOMA
     Dates: start: 20040722
  4. RITUXIMAB [Suspect]
     Indication: NON-HODGKIN'S LYMPHOMA
     Dates: start: 20040722
  5. LOSARTAN POTASSIUM [Concomitant]
  6. LEVOTHYROXINE SODIUM [Concomitant]
  7. OXYCONTIN [Concomitant]
  8. TRIMETHOBENZAMIDE HCL [Concomitant]

REACTIONS (4)
  - BONE MARROW DISORDER [None]
  - LEUKAEMIA [None]
  - PANCYTOPENIA [None]
  - PNEUMONIA [None]
